FAERS Safety Report 5881134-1 (Version None)
Quarter: 2008Q3

REPORT INFORMATION
  Report Type: 
  Country: None (occurrence: None)
  Receive Date: 20080912
  Receipt Date: 20080620
  Transmission Date: 20090109
  Serious: No
  Sender: FDA-Public Use
  Company Number: US-ABBOTT-08P-163-0458751-00

PATIENT
  Sex: Female
  Weight: 72.64 kg

DRUGS (7)
  1. HUMIRA [Suspect]
     Indication: RHEUMATOID ARTHRITIS
     Route: 058
     Dates: start: 20031001, end: 20060801
  2. SULFASALAZINE [Suspect]
     Indication: RHEUMATOID ARTHRITIS
  3. HYDROXYCHLOROQUINE [Concomitant]
     Indication: ARTHRITIS
     Route: 048
     Dates: start: 19990101
  4. PREDNISONE TAB [Concomitant]
     Indication: ARTHRITIS
     Route: 048
     Dates: start: 20060101
  5. LEFLUNOMIDE [Concomitant]
     Indication: ARTHRITIS
     Route: 048
  6. FOLIC ACID [Concomitant]
     Indication: ARTHRITIS
     Route: 048
  7. METHOTREXATE [Concomitant]
     Indication: ARTHRITIS
     Dosage: EIGHT 2.5MG TAB Q WED
     Route: 048
     Dates: start: 19990101

REACTIONS (4)
  - PYREXIA [None]
  - RASH [None]
  - STOMACH DISCOMFORT [None]
  - TREATMENT NONCOMPLIANCE [None]
